FAERS Safety Report 6241659-6 (Version None)
Quarter: 2009Q2

REPORT INFORMATION
  Report Type: 
  Country: None (occurrence: None)
  Receive Date: 20090623
  Receipt Date: 20061128
  Transmission Date: 20091009
  Serious: Yes (Other)
  Sender: FDA-Public Use
  Company Number: US-ROCHE-472880

PATIENT
  Age: 37 Year
  Sex: Female

DRUGS (2)
  1. RIBAVIRIN [Suspect]
     Indication: HEPATITIS C
     Dosage: DISCONTINUED AT WEEK 20 BECAUSE OF POOR TOLERANCE.
     Route: 065
  2. INTERFERON ALFA-2B [Suspect]
     Indication: HEPATITIS C
     Dosage: DISCONTINUED AT WEEK 20 BECAUSE OF POOR TOLERANCE.
     Route: 058

REACTIONS (6)
  - DEPRESSION [None]
  - HALLUCINATION, AUDITORY [None]
  - HALLUCINATION, VISUAL [None]
  - PARANOIA [None]
  - PSYCHOTIC DISORDER [None]
  - THYROIDITIS [None]
